FAERS Safety Report 18918129 (Version 1)
Quarter: 2021Q1

REPORT INFORMATION
  Report Type: Spontaneous
  Country: CA (occurrence: CA)
  Receive Date: 20210219
  Receipt Date: 20210219
  Transmission Date: 20210420
  Serious: Yes (Other)
  Sender: FDA-Public Use
  Company Number: CA-PFIZER INC-2021156129

PATIENT
  Age: 48 Year
  Sex: Female

DRUGS (4)
  1. CELEXA [CELECOXIB] [Concomitant]
     Active Substance: CELECOXIB
     Dosage: 20 MG, 1X/DAY
  2. LORAZEPAM. [Concomitant]
     Active Substance: LORAZEPAM
     Dosage: 20 MG, AS NEEDED
  3. METHOTREXATE SODIUM. [Suspect]
     Active Substance: METHOTREXATE SODIUM
     Dosage: 15 MG
     Route: 048
  4. MAXALT [Concomitant]
     Active Substance: RIZATRIPTAN BENZOATE
     Indication: MIGRAINE
     Dosage: 1 DF, AS NEEDED

REACTIONS (5)
  - Viral infection [Unknown]
  - Crohn^s disease [Unknown]
  - Fungal infection [Unknown]
  - Stomatitis [Unknown]
  - Swollen tongue [Unknown]
